FAERS Safety Report 17551337 (Version 2)
Quarter: 2020Q1

REPORT INFORMATION
  Report Type: Spontaneous
  Country: NL (occurrence: NL)
  Receive Date: 20200317
  Receipt Date: 20200331
  Transmission Date: 20200409
  Serious: Yes (Death, Life-Threatening, Hospitalization, Other)
  Sender: FDA-Public Use
  Company Number: NL-ACCORD-174020

PATIENT
  Age: 76 Year
  Sex: Female
  Weight: 44 kg

DRUGS (10)
  1. FOLIC ACID. [Concomitant]
     Active Substance: FOLIC ACID
     Dosage: THREE TIMES PER WEEK. STRENGTH : 5 MG
  2. FUROSEMIDE. [Concomitant]
     Active Substance: FUROSEMIDE
     Dosage: STRENGTH: 40 MG
  3. METHOTREXATE. [Suspect]
     Active Substance: METHOTREXATE
     Indication: RHEUMATOID ARTHRITIS
     Dosage: LOW DOSE
  4. SPIRONOLACTONE. [Concomitant]
     Active Substance: SPIRONOLACTONE
     Dosage: STRENGTH: 25 MG
  5. PLAQUENIL [Concomitant]
     Active Substance: HYDROXYCHLOROQUINE SULFATE
  6. LEVOTHYROXINE. [Concomitant]
     Active Substance: LEVOTHYROXINE
     Dosage: STRENGTH: 100 MICROGRAMMES
  7. CLOPIDOGREL [Concomitant]
     Active Substance: CLOPIDOGREL BISULFATE
     Dosage: STRENGTH: 75 MG
  8. PARACETAMOL [Concomitant]
     Active Substance: ACETAMINOPHEN
  9. MACROGOL/POTASSIUM CHLORIDE/SODIUM BICARBONATE/SODIUM CHLORIDE [Concomitant]
     Active Substance: POLYETHYLENE GLYCOL\POTASSIUM CHLORIDE\SODIUM BICARBONATE\SODIUM CHLORIDE
     Dosage: 1 PER DAY IF NECESSARY
  10. PANTOPRAZ [Concomitant]
     Dosage: STRENGTH: 40 MG

REACTIONS (12)
  - Product administration error [Unknown]
  - Hypotension [Unknown]
  - Pneumonia [Unknown]
  - Bone marrow failure [Unknown]
  - Accidental overdose [Unknown]
  - Cheyne-Stokes respiration [Unknown]
  - Atrial fibrillation [Unknown]
  - Hepatic steatosis [Unknown]
  - Toxicity to various agents [Fatal]
  - Renal impairment [Unknown]
  - Multiple organ dysfunction syndrome [Fatal]
  - Electrocardiogram QT prolonged [Unknown]
